FAERS Safety Report 7084633-2 (Version None)
Quarter: 2010Q4

REPORT INFORMATION
  Report Type: 
  Country: None (occurrence: None)
  Receive Date: 20101104
  Receipt Date: 20101025
  Transmission Date: 20110411
  Serious: Yes (Other)
  Sender: FDA-Public Use
  Company Number: PHHY2010US38743

PATIENT
  Sex: Male

DRUGS (2)
  1. GLEEVEC [Suspect]
     Indication: CHRONIC MYELOID LEUKAEMIA
     Dosage: 400 MG, QD
     Route: 048
     Dates: start: 20100422
  2. GLEEVEC [Suspect]
     Dosage: UNK
     Dates: start: 20101021

REACTIONS (4)
  - CONVULSION [None]
  - DACRYOSTENOSIS ACQUIRED [None]
  - EYE SWELLING [None]
  - OEDEMA [None]
